FAERS Safety Report 10751324 (Version 2)
Quarter: 2015Q1

REPORT INFORMATION
  Report Type: Spontaneous
  Country: NZ (occurrence: NZ)
  Receive Date: 20150130
  Receipt Date: 20150205
  Transmission Date: 20150721
  Serious: Yes (Death, Other)
  Sender: FDA-Public Use
  Company Number: NZ-009507513-1501NZL011428

PATIENT
  Age: 56 Year
  Sex: Female

DRUGS (5)
  1. SIMVASTATIN. [Suspect]
     Active Substance: SIMVASTATIN
     Dosage: 40 MG, UNK
     Route: 048
     Dates: end: 20080803
  2. ASPIRIN. [Concomitant]
     Active Substance: ASPIRIN
     Dosage: 100 MG, UNK
     Route: 048
     Dates: end: 20080805
  3. GABAPENTIN. [Concomitant]
     Active Substance: GABAPENTIN
     Dosage: 300 MG, UNK
     Route: 048
     Dates: end: 20080805
  4. INSULIN HUMAN, ISOPHANE [Concomitant]
     Active Substance: INSULIN HUMAN
     Dosage: UNK
     Route: 058
     Dates: end: 20080805
  5. ERYTHROMYCIN. [Interacting]
     Active Substance: ERYTHROMYCIN
     Dosage: UNK
     Route: 048
     Dates: start: 200807, end: 20080803

REACTIONS (2)
  - Rhabdomyolysis [Fatal]
  - Drug interaction [Fatal]

NARRATIVE: CASE EVENT DATE: 200812
